FAERS Safety Report 7188623-0 (Version None)
Quarter: 2010Q4

REPORT INFORMATION
  Report Type: 
  Country: None (occurrence: None)
  Receive Date: 20101222
  Receipt Date: 20100723
  Transmission Date: 20110411
  Serious: No
  Sender: FDA-Public Use
  Company Number: US-AMGEN-KDL426804

PATIENT

DRUGS (1)
  1. ENBREL [Suspect]
     Indication: ANKYLOSING SPONDYLITIS
     Dosage: 50 MG, QWK
     Route: 058
     Dates: start: 20100501

REACTIONS (4)
  - BACTERIAL INFECTION [None]
  - INJECTION SITE PAIN [None]
  - NEPHROLITHIASIS [None]
  - VULVOVAGINAL MYCOTIC INFECTION [None]
